FAERS Safety Report 14593835 (Version 2)
Quarter: 2018Q1

REPORT INFORMATION
  Report Type: Spontaneous
  Country: PL (occurrence: PL)
  Receive Date: 20180302
  Receipt Date: 20180319
  Transmission Date: 20180509
  Serious: Yes (Death, Other)
  Sender: FDA-Public Use
  Company Number: PL-B.I. PHARMACEUTICALS,INC./RIDGEFIELD-2018-BI-011416

PATIENT
  Sex: Male
  Weight: 120 kg

DRUGS (6)
  1. POLPRIL [Concomitant]
     Active Substance: RAMIPRIL
     Indication: HYPERTENSION
     Dosage: UNIT DOSE: 5
     Route: 048
     Dates: start: 20180212, end: 20180227
  2. PRADAXA [Suspect]
     Active Substance: DABIGATRAN ETEXILATE MESYLATE
     Indication: PULMONARY EMBOLISM
     Route: 048
     Dates: start: 20180217, end: 20180222
  3. POLPRIL [Concomitant]
     Active Substance: RAMIPRIL
     Route: 065
     Dates: start: 20180212, end: 20180227
  4. TIALORID [Concomitant]
     Indication: HYPERTENSION
     Dosage: DOSE: 5+50MILLIGRAM
     Route: 048
     Dates: start: 20180212, end: 20180222
  5. NOLPAZA [Concomitant]
     Active Substance: PANTOPRAZOLE SODIUM
     Indication: PROPHYLAXIS
     Route: 048
     Dates: start: 20180212, end: 20180227
  6. BIOTRAKSON [Concomitant]
     Active Substance: CEFTRIAXONE SODIUM
     Indication: PNEUMONITIS
     Dosage: UNIT DOSE: 10; DAILY DOSE: 20
     Route: 042
     Dates: start: 20180213, end: 20180219

REACTIONS (7)
  - Cardiac arrest [Fatal]
  - Sinus node dysfunction [Unknown]
  - Bradycardia [Fatal]
  - Drug ineffective [Fatal]
  - Circulatory collapse [Fatal]
  - Pulse absent [Fatal]
  - Oxygen saturation decreased [Unknown]
